FAERS Safety Report 25285903 (Version 1)
Quarter: 2025Q2

REPORT INFORMATION
  Report Type: Spontaneous
  Country: US (occurrence: US)
  Receive Date: 20250509
  Receipt Date: 20250509
  Transmission Date: 20250716
  Serious: Yes (Other)
  Sender: NOVARTIS
  Company Number: US-002147023-NVSC2025US075047

PATIENT
  Age: 57 Year
  Sex: Female
  Weight: 57.143 kg

DRUGS (1)
  1. COSENTYX [Suspect]
     Active Substance: SECUKINUMAB
     Indication: Psoriasis
     Route: 065
     Dates: start: 20240508, end: 20250415

REACTIONS (1)
  - Product ineffective [Unknown]

NARRATIVE: CASE EVENT DATE: 20250507
